FAERS Safety Report 9870917 (Version 1)
Quarter: 2014Q1

REPORT INFORMATION
  Report Type: Spontaneous
  Country: US (occurrence: None)
  Receive Date: 20140204
  Receipt Date: 20140204
  Transmission Date: 20141002
  Serious: No
  Sender: FDA-Public Use
  Company Number: None

PATIENT
  Age: 64 Year
  Sex: Male

DRUGS (1)
  1. HUMIRA 40 MG ABBVIE [Suspect]
     Indication: PSORIASIS
     Dosage: 40 MG  Q14D  SQ
     Route: 058
     Dates: start: 201203

REACTIONS (3)
  - Swelling [None]
  - Arthritis [None]
  - Erythema [None]
